FAERS Safety Report 5443912-2 (Version None)
Quarter: 2007Q3

REPORT INFORMATION
  Report Type: 
  Country: None (occurrence: None)
  Receive Date: 20070905
  Receipt Date: 20070425
  Transmission Date: 20080115
  Serious: Yes (Hospitalization)
  Sender: FDA-Public Use
  Company Number: US-BOEHRINGER INGELHEIM PHARMACEUTICALS, INC.-2006-BP-14976BP

PATIENT
  Sex: Female

DRUGS (24)
  1. MIRAPEX [Suspect]
     Indication: PARKINSON'S DISEASE
     Route: 048
     Dates: start: 20000701, end: 20070101
  2. VITAMIN E [Concomitant]
     Dates: start: 19990721
  3. NORFLEX [Concomitant]
     Dates: start: 19990428
  4. FLEXERIL [Concomitant]
     Dates: start: 19990721
  5. BOTOX [Concomitant]
     Indication: TORTICOLLIS
     Dates: start: 20000101
  6. PAXIL [Concomitant]
     Indication: DEPRESSION
     Dates: start: 20020101, end: 20070101
  7. PREMPHASE 14/14 [Concomitant]
  8. INDERAL LA [Concomitant]
     Indication: HYPERTENSION
     Dates: start: 20020307
  9. COGENTIN [Concomitant]
     Indication: PARKINSON'S DISEASE
     Route: 048
     Dates: start: 20030601, end: 20050401
  10. AMANTADINE HCL [Concomitant]
     Indication: PARKINSON'S DISEASE
     Dates: start: 20050101
  11. ELDEPRYL [Concomitant]
     Indication: PARKINSON'S DISEASE
     Dates: start: 20070101
  12. SINEMET [Concomitant]
     Indication: PARKINSON'S DISEASE
     Route: 048
     Dates: start: 19900101
  13. CARBIDOPA-LEVODOPA ER [Concomitant]
     Indication: PARKINSON'S DISEASE
     Dates: start: 20020101
  14. REQUIP [Concomitant]
     Indication: PARKINSON'S DISEASE
     Dates: start: 20000515, end: 20000701
  15. BENZOTROPINE [Concomitant]
     Indication: PARKINSON'S DISEASE
     Dates: start: 20030601, end: 20050401
  16. COMTAN [Concomitant]
     Indication: PARKINSON'S DISEASE
  17. DYAZIDE [Concomitant]
     Dates: start: 20000101
  18. ZANAFLEX [Concomitant]
     Dates: start: 20020701, end: 20020801
  19. MAXZIDE [Concomitant]
  20. GLYCERIN SUPPOSITORY [Concomitant]
     Indication: CONSTIPATION
  21. DYAZIDE [Concomitant]
  22. HYDROCHLOROTHIAZIDE [Concomitant]
  23. MILK OF MAGNESIA [Concomitant]
     Indication: CONSTIPATION
     Dates: start: 20030127
  24. SYNTHROID [Concomitant]

REACTIONS (10)
  - ANHEDONIA [None]
  - ANXIETY [None]
  - DEPRESSION [None]
  - ECONOMIC PROBLEM [None]
  - EMOTIONAL DISTRESS [None]
  - FEAR [None]
  - INJURY [None]
  - OBSESSIVE-COMPULSIVE DISORDER [None]
  - PAIN [None]
  - PATHOLOGICAL GAMBLING [None]
